FAERS Safety Report 11089951 (Version 3)
Quarter: 2015Q2

REPORT INFORMATION
  Report Type: Report from Study
  Country: US (occurrence: None)
  Receive Date: 20150504
  Receipt Date: 20150629
  Transmission Date: 20150821
  Serious: No
  Sender: FDA-Public Use
  Company Number: US-2015CRT000297

PATIENT
  Age: 49 Year
  Sex: Female
  Weight: 70.3 kg

DRUGS (13)
  1. CLINDAMYCIN [Concomitant]
     Active Substance: CLINDAMYCIN\CLINDAMYCIN PHOSPHATE
  2. VALIUM [Concomitant]
     Active Substance: DIAZEPAM
  3. SYNTHROID [Concomitant]
     Active Substance: LEVOTHYROXINE SODIUM
  4. ADDERALL [Concomitant]
     Active Substance: AMPHETAMINE ASPARTATE\AMPHETAMINE SULFATE\DEXTROAMPHETAMINE SACCHARATE\DEXTROAMPHETAMINE SULFATE
  5. MORPHINE [Concomitant]
     Active Substance: MORPHINE
  6. DULCOLAX (BISACODYL) [Concomitant]
     Active Substance: BISACODYL
  7. METAMUCIL (PLANTAGO OVATA) [Concomitant]
  8. MIRALAX (MACROGOL) [Concomitant]
  9. OXYCODONE [Concomitant]
     Active Substance: OXYCODONE
  10. OMEPRAZOLE. [Concomitant]
     Active Substance: OMEPRAZOLE
  11. VITAMIN D (ERGOCALCIFEROL) [Concomitant]
     Active Substance: ERGOCALCIFEROL
  12. KORLYM [Suspect]
     Active Substance: MIFEPRISTONE
     Indication: CUSHING^S SYNDROME
     Route: 048
     Dates: start: 20140924, end: 20141023
  13. MICROGESTIN FE (ETHINYLESTRADIOL, FERROUS FUMARATE, NORETHISTERONE ACETATE) [Concomitant]

REACTIONS (11)
  - Fungal infection [None]
  - Peripheral swelling [None]
  - Fatigue [None]
  - Rash [None]
  - Alopecia [None]
  - Vaginal discharge [None]
  - Musculoskeletal stiffness [None]
  - Vaginal haemorrhage [None]
  - Urinary tract infection [None]
  - Hot flush [None]
  - Menstruation irregular [None]

NARRATIVE: CASE EVENT DATE: 2014
